FAERS Safety Report 15084422 (Version 1)
Quarter: 2018Q3

REPORT INFORMATION
  Report Type: Spontaneous
  Country: US (occurrence: US)
  Receive Date: 20180628
  Receipt Date: 20180628
  Transmission Date: 20181010
  Serious: Yes (Hospitalization)
  Sender: FDA-Public Use
  Company Number: US-LPDUSPRD-20181187

PATIENT
  Age: 54 Year
  Sex: Female

DRUGS (2)
  1. SINGLE FRACTION RADIATION THERAPY [Suspect]
     Active Substance: RADIATION THERAPY
     Dosage: 8 GY??1 FRACTION
     Route: 065
  2. GEMCITABINE [Suspect]
     Active Substance: GEMCITABINE\GEMCITABINE HYDROCHLORIDE
     Dosage: UNKNOWN
     Route: 065

REACTIONS (3)
  - Dermatitis [Recovered/Resolved]
  - Recall phenomenon [Recovered/Resolved]
  - Myositis [Recovered/Resolved]
